FAERS Safety Report 16013012 (Version 1)
Quarter: 2019Q1

REPORT INFORMATION
  Report Type: Spontaneous
  Country: GB (occurrence: GB)
  Receive Date: 20190227
  Receipt Date: 20190227
  Transmission Date: 20190418
  Serious: Yes (Hospitalization)
  Sender: FDA-Public Use
  Company Number: GB-TEVA-2019-GB-1016538

PATIENT
  Age: 68 Year
  Sex: Male

DRUGS (1)
  1. PRELONE [Suspect]
     Active Substance: PREDNISOLONE
     Indication: POLYMYALGIA RHEUMATICA
     Dosage: HAD BEEN RECEIVING FROM PREVIOUS 6 MONTHS
     Route: 065

REACTIONS (2)
  - Pyomyositis [Recovered/Resolved]
  - Staphylococcal infection [Recovered/Resolved]
